FAERS Safety Report 10342541 (Version 2)
Quarter: 2014Q3

REPORT INFORMATION
  Report Type: Report from Study
  Country: US (occurrence: US)
  Receive Date: 20140725
  Receipt Date: 20140820
  Transmission Date: 20150326
  Serious: Yes (Hospitalization)
  Sender: FDA-Public Use
  Company Number: US-TEVA-495967USA

PATIENT
  Age: 61 Year
  Sex: Female
  Weight: 98.52 kg

DRUGS (7)
  1. LISINOPRIL AND HYDROCHLOROTHIAZIDE [Suspect]
     Active Substance: HYDROCHLOROTHIAZIDE\LISINOPRIL
     Dosage: 1 DOSAGE FORMS DAILY; 20/12.5 MG
     Route: 048
     Dates: start: 20140505, end: 20140530
  2. TYLOX [Concomitant]
     Active Substance: ACETAMINOPHEN\OXYCODONE HYDROCHLORIDE
     Dates: start: 2012, end: 2012
  3. TIZANIDINE [Concomitant]
     Active Substance: TIZANIDINE
     Indication: MUSCLE SPASMS
     Dates: start: 2012
  4. PREDNISONE. [Concomitant]
     Active Substance: PREDNISONE
     Dates: end: 2012
  5. NALDEMEDINE, PLACEBO [Suspect]
     Active Substance: NALDEMEDINE
     Indication: CONSTIPATION
     Route: 048
     Dates: start: 20140212, end: 20140507
  6. METOPROLOL [Suspect]
     Active Substance: METOPROLOL
     Dosage: 100 MILLIGRAM DAILY;
     Route: 048
     Dates: start: 20140505, end: 20140530
  7. BISACODYL. [Concomitant]
     Active Substance: BISACODYL
     Dates: start: 20140127

REACTIONS (6)
  - Dizziness [None]
  - Dyspnoea [None]
  - Syncope [Recovered/Resolved]
  - Hypotension [None]
  - Hypotension [Recovered/Resolved]
  - Dehydration [None]

NARRATIVE: CASE EVENT DATE: 20140530
